FAERS Safety Report 18860528 (Version 2)
Quarter: 2021Q1

REPORT INFORMATION
  Report Type: Report from Study
  Country: JP (occurrence: JP)
  Receive Date: 20210208
  Receipt Date: 20210311
  Transmission Date: 20210420
  Serious: Yes (Death, Life-Threatening, Hospitalization, Other)
  Sender: FDA-Public Use
  Company Number: JP-PFIZER INC-2021088980

PATIENT
  Age: 16 Year
  Sex: Female
  Weight: 41 kg

DRUGS (27)
  1. AMBISOME [Suspect]
     Active Substance: AMPHOTERICIN B
     Indication: BRONCHOPULMONARY ASPERGILLOSIS
     Dosage: 250 MG, DAILY
     Route: 042
  2. JAKAVI [RUXOLITINIB PHOSPHATE] [Suspect]
     Active Substance: RUXOLITINIB PHOSPHATE
     Indication: PRIMARY MYELOFIBROSIS
     Dosage: 25 MG, 2X/DAY
     Route: 048
     Dates: start: 20150120, end: 20150125
  3. JAKAVI [RUXOLITINIB PHOSPHATE] [Suspect]
     Active Substance: RUXOLITINIB PHOSPHATE
     Dosage: 50 MG, 2X/DAY
     Route: 048
     Dates: start: 20150321, end: 20150609
  4. FUNGUARD [Suspect]
     Active Substance: MICAFUNGIN SODIUM
     Indication: BRONCHOPULMONARY ASPERGILLOSIS
     Dosage: 250 MG, DAILY
     Route: 065
     Dates: start: 20150520, end: 20150605
  5. RED BLOOD CELLS, CONCENTRATED [Concomitant]
     Active Substance: HUMAN RED BLOOD CELL
     Dosage: UNK
  6. PLATELETS [Concomitant]
     Active Substance: HUMAN PLATELET, ALLOGENIC
     Dosage: UNK
  7. BACTRAMIN [Concomitant]
     Active Substance: SULFAMETHOXAZOLE\TRIMETHOPRIM
     Dosage: UNK
  8. FOSTOIN [Suspect]
     Active Substance: FOSPHENYTOIN SODIUM
     Indication: SEIZURE
     Dosage: 270 MG, DAILY
     Route: 065
     Dates: start: 20150603
  9. AMIKACIN SULFATE. [Suspect]
     Active Substance: AMIKACIN SULFATE
     Indication: PYREXIA
     Dosage: 400 MG, DAILY
     Route: 065
     Dates: start: 20150209, end: 20150210
  10. KENKETU GLOVENIN?I [Suspect]
     Active Substance: HUMAN IMMUNOGLOBULIN G
     Dosage: 7.5 MG, DAILY
     Route: 065
     Dates: start: 20150511, end: 20150511
  11. DECADRON [Suspect]
     Active Substance: DEXAMETHASONE
     Indication: BLAST CELL COUNT INCREASED
     Dosage: 19.7 MG
     Route: 048
     Dates: start: 20150603, end: 20150605
  12. ACICLOVIR [Suspect]
     Active Substance: ACYCLOVIR
     Indication: HERPES ZOSTER
     Dosage: 750 MG, DAILY
     Route: 041
     Dates: start: 20150409, end: 20150417
  13. KENKETU GLOVENIN?I [Suspect]
     Active Substance: HUMAN IMMUNOGLOBULIN G
     Indication: HERPES ZOSTER
     Dosage: 7.5 MG, DAILY
     Route: 065
     Dates: start: 20150409, end: 20150411
  14. PLATELETS [Concomitant]
     Active Substance: HUMAN PLATELET, ALLOGENIC
     Dosage: UNK
  15. AMIKACIN SULFATE. [Suspect]
     Active Substance: AMIKACIN SULFATE
     Indication: SEPSIS
     Dosage: 400 MG, DAILY
     Route: 065
     Dates: start: 20150423
  16. ACICLOVIR [Suspect]
     Active Substance: ACYCLOVIR
     Dosage: 800 MG, DAILY
     Route: 041
     Dates: start: 20150523, end: 20150605
  17. MEROPENEM. [Suspect]
     Active Substance: MEROPENEM
     Indication: SEPSIS
     Dosage: 500 MG, DAILY
     Route: 065
     Dates: start: 20150608
  18. KENKETU GLOVENIN?I [Suspect]
     Active Substance: HUMAN IMMUNOGLOBULIN G
     Indication: PYREXIA
     Dosage: 7.5 MG, DAILY
     Route: 065
     Dates: start: 20150209, end: 20150210
  19. DECADRON [Suspect]
     Active Substance: DEXAMETHASONE
     Indication: ACUTE LYMPHOCYTIC LEUKAEMIA
     Dosage: 26.4 MG
     Route: 048
     Dates: start: 20150420, end: 20150428
  20. JAKAVI [RUXOLITINIB PHOSPHATE] [Suspect]
     Active Substance: RUXOLITINIB PHOSPHATE
     Dosage: 40 MG, 2X/DAY
     Route: 048
     Dates: start: 20150126, end: 20150201
  21. CEFTAZIDIME. [Suspect]
     Active Substance: CEFTAZIDIME
     Indication: SEPSIS
     Dosage: 3 G, DAILY
     Route: 065
     Dates: start: 20150209, end: 20150210
  22. CEFTAZIDIME. [Suspect]
     Active Substance: CEFTAZIDIME
     Indication: PYREXIA
     Dosage: 6 G, DAILY
     Route: 065
     Dates: start: 20150423
  23. DECADRON [Suspect]
     Active Substance: DEXAMETHASONE
     Indication: SEIZURE
     Dosage: 8 MG
     Route: 048
     Dates: start: 20150316, end: 20150320
  24. JAKAVI [RUXOLITINIB PHOSPHATE] [Suspect]
     Active Substance: RUXOLITINIB PHOSPHATE
     Dosage: 50 MG, 2X/DAY
     Route: 048
     Dates: start: 20150202, end: 20150313
  25. ONCOVIN [Suspect]
     Active Substance: VINCRISTINE SULFATE
     Indication: BLAST CELL COUNT INCREASED
     Dosage: 2 MG
     Route: 065
     Dates: start: 20150316, end: 20150316
  26. ACICLOVIR [Suspect]
     Active Substance: ACYCLOVIR
     Dosage: 250 MG, DAILY
     Route: 041
     Dates: start: 20150511, end: 20150522
  27. DIFLUCAN [Concomitant]
     Active Substance: FLUCONAZOLE
     Dosage: UNK

REACTIONS (23)
  - Respiratory disorder [Fatal]
  - Wheezing [Fatal]
  - White blood cell count decreased [Not Recovered/Not Resolved]
  - Gamma-glutamyltransferase increased [Not Recovered/Not Resolved]
  - C-reactive protein increased [Unknown]
  - Blast cell count increased [Fatal]
  - Acute lymphocytic leukaemia [Fatal]
  - Bronchopulmonary aspergillosis [Not Recovered/Not Resolved]
  - Concomitant disease aggravated [Fatal]
  - Pyrexia [Unknown]
  - Lymphocyte percentage decreased [Not Recovered/Not Resolved]
  - Blood pressure decreased [Unknown]
  - Myelosuppression [Not Recovered/Not Resolved]
  - Sepsis [Not Recovered/Not Resolved]
  - Rash [Unknown]
  - Hepatic function abnormal [Recovered/Resolved]
  - Pyrexia [Recovered/Resolved]
  - Diarrhoea [Recovered/Resolved]
  - Seizure [Not Recovered/Not Resolved]
  - Red blood cell count decreased [Not Recovered/Not Resolved]
  - Herpes zoster [Unknown]
  - Haemoglobin decreased [Not Recovered/Not Resolved]
  - Platelet count decreased [Not Recovered/Not Resolved]

NARRATIVE: CASE EVENT DATE: 20150120
